FAERS Safety Report 8070494-1 (Version None)
Quarter: 2012Q1

REPORT INFORMATION
  Report Type: 
  Country: None (occurrence: None)
  Receive Date: 20120125
  Receipt Date: 20120123
  Transmission Date: 20120608
  Serious: Yes (Hospitalization, Other)
  Sender: FDA-Public Use
  Company Number: AU-JNJFOC-20110701620

PATIENT
  Sex: Female
  Weight: 45 kg

DRUGS (3)
  1. INVEGA SUSTENNA [Suspect]
     Indication: SCHIZOAFFECTIVE DISORDER
     Route: 030
     Dates: start: 20110530
  2. INVEGA SUSTENNA [Suspect]
     Route: 030
     Dates: start: 20110627
  3. INVEGA SUSTENNA [Suspect]
     Dosage: LAST INJECTION WAS ON 27-JUN-2011
     Route: 030
     Dates: start: 20110502

REACTIONS (1)
  - MANIA [None]
